FAERS Safety Report 23664806 (Version 1)
Quarter: 2024Q1

REPORT INFORMATION
  Report Type: Spontaneous
  Country: IE (occurrence: IE)
  Receive Date: 20240322
  Receipt Date: 20240322
  Transmission Date: 20240409
  Serious: Yes (Hospitalization, Other)
  Sender: FDA-Public Use
  Company Number: IE-PURDUE PHARMA-USA-2024-0308455

PATIENT
  Sex: Male

DRUGS (5)
  1. OXYCONTIN [Suspect]
     Active Substance: OXYCODONE HYDROCHLORIDE
     Indication: Abdominal pain upper
     Dosage: 80 MILLIGRAM, BID
     Route: 048
  2. OXYCONTIN [Suspect]
     Active Substance: OXYCODONE HYDROCHLORIDE
     Dosage: 40 MILLIGRAM, BID (50% DOSE REDUCTION ON PREVIOUS OXYCODONE/NALOXONE DOSE)
     Route: 048
  3. NALOXONE HYDROCHLORIDE\OXYCODONE HYDROCHLORIDE [Suspect]
     Active Substance: NALOXONE HYDROCHLORIDE\OXYCODONE HYDROCHLORIDE
     Indication: Abdominal pain upper
     Dosage: 80/40 MILLIGRAM, BID
     Route: 065
  4. NALOXONE HYDROCHLORIDE\OXYCODONE HYDROCHLORIDE [Suspect]
     Active Substance: NALOXONE HYDROCHLORIDE\OXYCODONE HYDROCHLORIDE
     Dosage: 60/30 MILLIGRAM, BID
     Route: 065
  5. OXYCODONE HYDROCHLORIDE [Suspect]
     Active Substance: OXYCODONE HYDROCHLORIDE
     Indication: Abdominal pain upper
     Dosage: 10 MILLIGRAM, QID PRN, (HOURLY)
     Route: 065

REACTIONS (5)
  - Respiratory rate decreased [Unknown]
  - Toxicity to various agents [Unknown]
  - Somnolence [Unknown]
  - Confusional state [Unknown]
  - Drug ineffective [Unknown]
